FAERS Safety Report 5321759-5 (Version None)
Quarter: 2007Q2

REPORT INFORMATION
  Report Type: 
  Country: None (occurrence: None)
  Receive Date: 20070510
  Receipt Date: 20070501
  Transmission Date: 20071010
  Serious: Yes (Death, Hospitalization)
  Sender: FDA-Public Use
  Company Number: CA-PFIZER INC-2007018752

PATIENT
  Sex: Male
  Weight: 85 kg

DRUGS (2)
  1. SU-011,248 [Suspect]
     Indication: TESTIS CANCER
     Route: 048
     Dates: start: 20070116, end: 20070212
  2. SU-011,248 [Suspect]
     Route: 048

REACTIONS (3)
  - DEATH [None]
  - MASS [None]
  - PAIN [None]
